FAERS Safety Report 15543692 (Version 2)
Quarter: 2018Q4

REPORT INFORMATION
  Report Type: Spontaneous
  Country: US (occurrence: US)
  Receive Date: 20181023
  Receipt Date: 20181107
  Transmission Date: 20190205
  Serious: Yes (Hospitalization, Other)
  Sender: FDA-Public Use
  Company Number: US-GLAXOSMITHKLINE-US2018GSK189125

PATIENT
  Age: 79 Year
  Sex: Male

DRUGS (2)
  1. LAMICTAL [Suspect]
     Active Substance: LAMOTRIGINE
     Indication: SEIZURE
  2. LAMICTAL [Suspect]
     Active Substance: LAMOTRIGINE
     Indication: HYPERAESTHESIA
     Dosage: 150 MG, BID
     Route: 048

REACTIONS (7)
  - Colorectal cancer [Not Recovered/Not Resolved]
  - Colectomy [Unknown]
  - Fall [Unknown]
  - Chronic obstructive pulmonary disease [Not Recovered/Not Resolved]
  - Metastases to liver [Unknown]
  - Hip fracture [Unknown]
  - Product use in unapproved indication [Unknown]

NARRATIVE: CASE EVENT DATE: 201802
